FAERS Safety Report 5317750-5 (Version None)
Quarter: 2007Q2

REPORT INFORMATION
  Report Type: 
  Country: None (occurrence: None)
  Receive Date: 20070502
  Receipt Date: 20070502
  Transmission Date: 20071010
  Serious: Yes (Life-Threatening, Hospitalization, Disabling)
  Sender: FDA-Public Use
  Company Number: None

PATIENT
  Age: 60 Year
  Sex: Male
  Weight: 52.1637 kg

DRUGS (1)
  1. ALLOPURINOL [Suspect]
     Indication: URETERIC OBSTRUCTION
     Dosage: TAKE 1 TABLET DAILY PO
     Route: 048
     Dates: start: 20070410, end: 20070420

REACTIONS (4)
  - ADVERSE DRUG REACTION [None]
  - PYREXIA [None]
  - RASH [None]
  - RENAL FAILURE ACUTE [None]
